FAERS Safety Report 4804720-6 (Version None)
Quarter: 2005Q4

REPORT INFORMATION
  Report Type: 
  Country: None (occurrence: None)
  Receive Date: 20051020
  Receipt Date: 20040512
  Transmission Date: 20060501
  Serious: Yes (Hospitalization, Other)
  Sender: FDA-Public Use
  Company Number: PHNU2004DE01799

PATIENT
  Age: 39 Year
  Sex: Female

DRUGS (3)
  1. CLOZARIL [Suspect]
     Indication: SCHIZOPHRENIA
     Dosage: 25 MG/DAY
     Route: 048
     Dates: start: 19860101
  2. ANTIBIOTICS [Concomitant]
     Route: 065
     Dates: start: 20040601, end: 20040601
  3. MAGNESIUM [Concomitant]
     Dosage: UNKNOWN
     Route: 048

REACTIONS (9)
  - ANTEPARTUM HAEMORRHAGE [None]
  - CAESAREAN SECTION [None]
  - DRUG EXPOSURE DURING PREGNANCY [None]
  - HAEMATOMA [None]
  - HAEMORRHAGE [None]
  - NORMAL NEWBORN [None]
  - PREGNANCY [None]
  - RETROPLACENTAL HAEMATOMA [None]
  - UMBILICAL CORD AROUND NECK [None]
